FAERS Safety Report 22110130 (Version 2)
Quarter: 2023Q1

REPORT INFORMATION
  Report Type: Report from Study
  Country: TR (occurrence: None)
  Receive Date: 20230317
  Receipt Date: 20230324
  Transmission Date: 20230417
  Serious: Yes (Hospitalization, Other)
  Sender: FDA-Public Use
  Company Number: TR-ROCHE-3296791

PATIENT
  Age: 50 Year
  Sex: Female
  Weight: 54 kg

DRUGS (45)
  1. RITUXIMAB [Suspect]
     Active Substance: RITUXIMAB
     Indication: Diffuse large B-cell lymphoma refractory
     Dosage: DATE OF LAST/MOST RECENT DOSE OF RITUXIMAB PRIOR TO AE AND SAE ONSET 14/FEB/2023, 06/MAR/2023 DOSE 5
     Route: 041
     Dates: start: 20230124
  2. GEMCITABINE [Suspect]
     Active Substance: GEMCITABINE
     Indication: Diffuse large B-cell lymphoma refractory
     Dosage: DATE OF LAST/MOST RECENT DOSE OF GEMCITABINE PRIOR TO AE ONSET 15/FEB/2023, 07/MAR/2023 DOSE 1530 MG
     Route: 042
     Dates: start: 20230125
  3. OXALIPLATIN [Suspect]
     Active Substance: OXALIPLATIN
     Indication: Diffuse large B-cell lymphoma refractory
     Dosage: DATE OF LAST/MOST RECENT DOSE OF OXALIPLATIN PRIOR TO AE ONSET 15/FEB/2023, 07/MAR/2023 DOSE 153 MG
     Route: 042
     Dates: start: 20230125
  4. KEPPRA [Concomitant]
     Active Substance: LEVETIRACETAM
     Route: 048
     Dates: start: 20230123
  5. LEVOTHYROXINE SODIUM [Concomitant]
     Active Substance: LEVOTHYROXINE SODIUM
     Indication: Hypothyroidism
     Route: 048
     Dates: start: 20060101
  6. ESCITALOPRAM OXALATE [Concomitant]
     Active Substance: ESCITALOPRAM OXALATE
     Indication: Anxiety
     Route: 048
     Dates: start: 20230116, end: 20230131
  7. ALDACTONE [Concomitant]
     Active Substance: SPIRONOLACTONE
     Route: 048
     Dates: start: 20221214
  8. FLUCONAZOLE [Concomitant]
     Active Substance: FLUCONAZOLE
     Indication: Bacteraemia
     Route: 042
     Dates: start: 20221214, end: 20230130
  9. FLUCONAZOLE [Concomitant]
     Active Substance: FLUCONAZOLE
     Indication: Infection
     Route: 042
     Dates: start: 20230217, end: 20230302
  10. FLUCONAZOLE [Concomitant]
     Active Substance: FLUCONAZOLE
     Route: 042
     Dates: start: 20230314
  11. VALTREX [Concomitant]
     Active Substance: VALACYCLOVIR HYDROCHLORIDE
     Route: 048
     Dates: start: 20230124
  12. PAROL [Concomitant]
     Active Substance: ACETAMINOPHEN
     Dosage: 1 AMPUOLE
     Route: 042
     Dates: start: 20230124
  13. PHENIRAMINE [Concomitant]
     Active Substance: PHENIRAMINE
     Dosage: 1 AMPOULE
     Route: 042
     Dates: start: 20230124
  14. METHYLPREDNISOLONE [Concomitant]
     Active Substance: METHYLPREDNISOLONE
     Route: 042
     Dates: start: 20230124
  15. LEVEMIR [Concomitant]
     Active Substance: INSULIN DETEMIR
     Indication: Diabetes mellitus
     Dosage: 20 UNITS
     Route: 058
     Dates: start: 20221214
  16. LEVEMIR [Concomitant]
     Active Substance: INSULIN DETEMIR
     Dosage: 20 UNITS
     Route: 058
     Dates: start: 20230224
  17. NOVORAPID [Concomitant]
     Active Substance: INSULIN ASPART
     Indication: Diabetes mellitus
     Dosage: 15 UNITS
     Route: 058
     Dates: start: 20221214
  18. NOVORAPID [Concomitant]
     Active Substance: INSULIN ASPART
     Dosage: 15 UNITS
     Route: 058
     Dates: start: 20230224
  19. ACETAZOLAMIDE [Concomitant]
     Active Substance: ACETAZOLAMIDE
     Route: 048
     Dates: start: 20221214, end: 20230216
  20. ACETAZOLAMIDE [Concomitant]
     Active Substance: ACETAZOLAMIDE
     Route: 042
     Dates: start: 20230217
  21. FARDOBEN [Concomitant]
     Route: 048
     Dates: start: 20221214
  22. NYSTATIN [Concomitant]
     Active Substance: NYSTATIN
     Route: 048
     Dates: start: 20221214
  23. KALINOR [Concomitant]
     Dosage: 30 TABLETS
     Route: 048
     Dates: start: 20230201, end: 20230212
  24. MAGNORM [Concomitant]
     Route: 048
     Dates: start: 20230201
  25. ZOLAX (TURKEY) [Concomitant]
     Route: 048
     Dates: start: 20230201, end: 20230220
  26. NORVASC [Concomitant]
     Active Substance: AMLODIPINE BESYLATE
     Indication: Hypertension
     Route: 048
     Dates: start: 20221214
  27. CIPRALEX [Concomitant]
     Active Substance: ESCITALOPRAM OXALATE
     Indication: Anxiety
     Route: 048
     Dates: start: 20230201
  28. FRAVEN [Concomitant]
     Indication: Neutrophil count decreased
     Dosage: 13//FEB/2023, SUBSEQUENT DOSE OF FRAVEN, SC, 30 U FROM 24//FEB/2023 TO 24//FEB/2023
     Route: 030
     Dates: start: 20230123, end: 20230123
  29. FRAVEN [Concomitant]
     Dosage: 30 UNIT
     Route: 030
     Dates: start: 20230213, end: 20230213
  30. FRAVEN [Concomitant]
     Dosage: 30 UNITS
     Route: 058
     Dates: start: 20230218, end: 20230218
  31. FRAVEN [Concomitant]
     Dosage: 30 UNIT
     Route: 058
     Dates: start: 20230219, end: 20230219
  32. FRAVEN [Concomitant]
     Dosage: 30 UNIT
     Route: 058
     Dates: start: 20230220, end: 20230223
  33. FRAVEN [Concomitant]
     Dosage: 30 UNIT
     Route: 058
     Dates: start: 20230224, end: 20230224
  34. KYTRIL [Concomitant]
     Active Substance: GRANISETRON HYDROCHLORIDE
     Indication: Vomiting
     Dosage: 2/17/2023
     Route: 048
     Dates: start: 20230208, end: 20230214
  35. KYTRIL [Concomitant]
     Active Substance: GRANISETRON HYDROCHLORIDE
     Indication: Bacteraemia
     Route: 048
     Dates: start: 20230217
  36. PANTO (TURKEY) [Concomitant]
     Route: 048
     Dates: start: 20230217, end: 20230219
  37. AMBISOME [Concomitant]
     Active Substance: AMPHOTERICIN B
     Indication: Bacteraemia
     Route: 042
     Dates: start: 20230217, end: 20230221
  38. HUMAN RED BLOOD CELL [Concomitant]
     Active Substance: HUMAN RED BLOOD CELL
     Indication: Anaemia
     Dosage: 1 UNIT
     Route: 042
     Dates: start: 20230218, end: 20230218
  39. FRAVEN [Concomitant]
     Route: 058
     Dates: start: 20230218, end: 20230223
  40. UNSPECIFIED INGREDIENT [Concomitant]
     Active Substance: UNSPECIFIED INGREDIENT
     Route: 048
     Dates: start: 20230220, end: 20230227
  41. ROCALTROL [Concomitant]
     Active Substance: CALCITRIOL
     Dosage: O.25 OTHER
     Route: 048
     Dates: start: 20230224
  42. MAGNESIUM SULFATE [Concomitant]
     Active Substance: MAGNESIUM SULFATE
     Dosage: 1 AMPOULE
     Route: 042
     Dates: start: 20230302, end: 20230302
  43. EMETRIL [Concomitant]
     Indication: Vomiting
     Dosage: 1 AMPOULE
     Route: 042
     Dates: start: 20230307, end: 20230307
  44. CALCIUM GLUCONATE [Concomitant]
     Active Substance: CALCIUM GLUCONATE
  45. FOLIC ACID [Concomitant]
     Active Substance: FOLIC ACID

REACTIONS (5)
  - Hypokalaemia [Not Recovered/Not Resolved]
  - Bacteraemia [Recovered/Resolved]
  - Neutrophil count decreased [Recovered/Resolved]
  - Febrile neutropenia [Not Recovered/Not Resolved]
  - Infection [Not Recovered/Not Resolved]

NARRATIVE: CASE EVENT DATE: 20230216
